FAERS Safety Report 12986401 (Version 1)
Quarter: 2016Q4

REPORT INFORMATION
  Report Type: Spontaneous
  Country: US (occurrence: US)
  Receive Date: 20161129
  Receipt Date: 20161129
  Transmission Date: 20170207
  Serious: Yes (Hospitalization, Other)
  Sender: FDA-Public Use
  Company Number: None

PATIENT
  Sex: Female

DRUGS (4)
  1. FLUPHENAZINE HCL [Suspect]
     Active Substance: FLUPHENAZINE HYDROCHLORIDE
     Indication: PRODUCT USED FOR UNKNOWN INDICATION
     Dosage: QUANTITY:1 TABLET(S); DAILY; ORAL?
     Route: 048
     Dates: start: 20030328, end: 20150328
  2. LEVOTHYROXINE. [Concomitant]
     Active Substance: LEVOTHYROXINE
  3. TYLENOL [Concomitant]
     Active Substance: ACETAMINOPHEN
  4. LOSARTAN. [Concomitant]
     Active Substance: LOSARTAN

REACTIONS (5)
  - Tardive dyskinesia [None]
  - Social problem [None]
  - Abdominal pain upper [None]
  - Photosensitivity reaction [None]
  - Tremor [None]

NARRATIVE: CASE EVENT DATE: 20040615
